FAERS Safety Report 11624142 (Version 1)
Quarter: 2015Q4

REPORT INFORMATION
  Report Type: Spontaneous
  Country: US (occurrence: US)
  Receive Date: 20151013
  Receipt Date: 20151013
  Transmission Date: 20160304
  Serious: No
  Sender: FDA-Public Use
  Company Number: US-JNJFOC-20150923889

PATIENT
  Sex: Female
  Weight: 64.86 kg

DRUGS (3)
  1. ROGAINE MEN^S SOLUTION [Concomitant]
     Indication: ALOPECIA
     Route: 065
  2. WOMENS ROGAINE [Suspect]
     Active Substance: MINOXIDIL
     Route: 061
  3. WOMENS ROGAINE [Suspect]
     Active Substance: MINOXIDIL
     Indication: ALOPECIA
     Dosage: ONCE OR TWICE PER DAY
     Route: 061

REACTIONS (3)
  - Seborrhoea [Unknown]
  - Inappropriate schedule of drug administration [Unknown]
  - Skin disorder [Unknown]
